FAERS Safety Report 9529928 (Version 1)
Quarter: 2013Q1

REPORT INFORMATION
  Report Type: Spontaneous
  Country: US (occurrence: None)
  Receive Date: 20130329
  Receipt Date: 20130329
  Transmission Date: 20140127
  Serious: No
  Sender: FDA-Public Use
  Company Number: 1000042820

PATIENT
  Sex: Male

DRUGS (1)
  1. LINZESS (LINACLOTIDE) (CAPSULES) [Suspect]

REACTIONS (1)
  - Diarrhoea [None]
